FAERS Safety Report 4530089-0 (Version None)
Quarter: 2004Q4

REPORT INFORMATION
  Report Type: 
  Country: None (occurrence: None)
  Receive Date: 20041215
  Receipt Date: 20041215
  Transmission Date: 20050328
  Serious: Yes (Other)
  Sender: FDA-Public Use
  Company Number: None

PATIENT
  Age: 72 Year
  Sex: Male

DRUGS (5)
  1. DONEPEZIL HCL [Suspect]
     Indication: AMNESIA
     Dosage: 10MG  QD ORAL
     Route: 048
     Dates: start: 20031202, end: 20040606
  2. ROFECOXIB [Concomitant]
  3. OMEPRAZOLE [Concomitant]
  4. LAMOTRIGINE [Concomitant]
  5. PSYLLIUM [Concomitant]

REACTIONS (1)
  - BRADYCARDIA [None]
